FAERS Safety Report 6624161-9 (Version None)
Quarter: 2010Q1

REPORT INFORMATION
  Report Type: 
  Country: None (occurrence: None)
  Receive Date: 20100310
  Receipt Date: 20091026
  Transmission Date: 20100710
  Serious: No
  Sender: FDA-Public Use
  Company Number: US-BIOGENIDEC-2009BI034685

PATIENT
  Age: 39 Year
  Sex: Female

DRUGS (3)
  1. AVONEX [Suspect]
     Indication: MULTIPLE SCLEROSIS
     Route: 030
     Dates: end: 20080101
  2. AVONEX [Suspect]
     Route: 030
     Dates: start: 20090201
  3. IMMUNE GLOBULIN NOS [Concomitant]

REACTIONS (1)
  - ASTHMA [None]
